FAERS Safety Report 16945545 (Version 8)
Quarter: 2020Q4

REPORT INFORMATION
  Report Type: Report from Study
  Country: US (occurrence: US)
  Receive Date: 20191022
  Receipt Date: 20201230
  Transmission Date: 20210113
  Serious: Yes (Hospitalization)
  Sender: FDA-Public Use
  Company Number: NVSC2019US002001

PATIENT
  Age: 18 Year
  Sex: Male

DRUGS (4)
  1. GSK1120212 [Suspect]
     Active Substance: TRAMETINIB
     Indication: NEOPLASM MALIGNANT
     Dosage: 300 MG, BID
     Route: 048
     Dates: start: 20170920, end: 20191021
  2. GSK2118436 [Suspect]
     Active Substance: DABRAFENIB
     Dosage: UNK
     Route: 048
  3. GSK2118436 [Suspect]
     Active Substance: DABRAFENIB
     Indication: NEOPLASM MALIGNANT
     Dosage: 300 MG, BID
     Route: 048
     Dates: start: 20170920, end: 20191021
  4. GSK1120212 [Suspect]
     Active Substance: TRAMETINIB
     Dosage: UNK
     Route: 048

REACTIONS (2)
  - Weight decreased [Recovered/Resolved]
  - Hyperglycaemia [Recovered/Resolved]

NARRATIVE: CASE EVENT DATE: 20191007
